FAERS Safety Report 19948433 (Version 1)
Quarter: 2021Q4

REPORT INFORMATION
  Report Type: 
  Country: US (occurrence: US)
  Receive Date: 20211012
  Receipt Date: 20211012
  Transmission Date: 20220303
  Serious: No
  Sender: FDA-Public Use
  Company Number: US-C B FLEET CO INC-202010-US-003898

PATIENT
  Age: 69 Year
  Sex: Female

DRUGS (1)
  1. MONISTAT 7 7-DAY DISPOSABLE APPLICATORS [Suspect]
     Active Substance: MICONAZOLE NITRATE
     Indication: Fungal infection
     Dosage: USED VAGINALLY LAST NIGHT
     Route: 067
     Dates: start: 20201026

REACTIONS (4)
  - Vulvovaginal burning sensation [Not Recovered/Not Resolved]
  - Vaginal discharge [Not Recovered/Not Resolved]
  - Perineal pain [Not Recovered/Not Resolved]
  - Product administered at inappropriate site [None]
